FAERS Safety Report 13466003 (Version 4)
Quarter: 2017Q3

REPORT INFORMATION
  Report Type: Spontaneous
  Country: US (occurrence: US)
  Receive Date: 20170421
  Receipt Date: 20170922
  Transmission Date: 20171127
  Serious: No
  Sender: FDA-Public Use
  Company Number: US-PFIZER INC-2017169278

PATIENT
  Age: 60 Year
  Sex: Female
  Weight: 93.89 kg

DRUGS (8)
  1. FLUDROCORTISON [Concomitant]
     Active Substance: FLUDROCORTISONE
     Indication: ADDISON^S DISEASE
     Dosage: 0.1MG; 1/2 TABLET BY MOUTH 5 DAYS A WEEK
     Route: 048
     Dates: start: 1991
  2. VITAMIN B12 [Concomitant]
     Active Substance: CYANOCOBALAMIN
     Dosage: UNK
  3. CORTEF [Suspect]
     Active Substance: HYDROCORTISONE
     Indication: ADRENAL INSUFFICIENCY
  4. FLUDROCORTISON [Concomitant]
     Active Substance: FLUDROCORTISONE
     Dosage: UNK
     Dates: start: 1991
  5. CORTEF [Suspect]
     Active Substance: HYDROCORTISONE
     Indication: ADDISON^S DISEASE
     Dosage: BETWEEN 22.5MG TO 25MG DAILY; ON OCCASION UP TO 30MG (4 AM: 2.5 MG; 6 AM: 7.5-10.0 MG; 11-12: 5.0 MG
     Dates: start: 2014
  6. ALENDRONATE [Concomitant]
     Active Substance: ALENDRONATE SODIUM
     Indication: OSTEOPOROSIS
     Dosage: 70MG ONE TABLET WEEKLY
     Dates: start: 2016
  7. LOVAZA [Concomitant]
     Active Substance: OMEGA-3-ACID ETHYL ESTERS
     Indication: BLOOD CHOLESTEROL ABNORMAL
     Dosage: 1 G, UNK
     Dates: start: 2000, end: 201702
  8. SYNTHROID [Concomitant]
     Active Substance: LEVOTHYROXINE SODIUM
     Indication: HYPOTHYROIDISM
     Dosage: 175MCG ONCE DAILY
     Dates: start: 2016

REACTIONS (2)
  - Food allergy [Recovering/Resolving]
  - Drug dose omission [Unknown]

NARRATIVE: CASE EVENT DATE: 201702
